FAERS Safety Report 8305147-5 (Version None)
Quarter: 2012Q2

REPORT INFORMATION
  Report Type: 
  Country: None (occurrence: None)
  Receive Date: 20120416
  Receipt Date: 20120404
  Transmission Date: 20120825
  Serious: Yes (Hospitalization)
  Sender: FDA-Public Use
  Company Number: 2012031915

PATIENT
  Sex: Female

DRUGS (1)
  1. HIZENTRA [Suspect]
     Dates: start: 20120101

REACTIONS (1)
  - PNEUMONIA [None]
